FAERS Safety Report 11826121 (Version 1)
Quarter: 2015Q4

REPORT INFORMATION
  Report Type: Spontaneous
  Country: US (occurrence: US)
  Receive Date: 20151211
  Receipt Date: 20151211
  Transmission Date: 20160305
  Serious: No
  Sender: FDA-Public Use
  Company Number: US-ENDO PHARMACEUTICALS INC.-HCDA20150005

PATIENT
  Age: 56 Year
  Sex: Female

DRUGS (1)
  1. HYDROCODONE BITARTRATE AND ACETAMINOPHEN [Suspect]
     Active Substance: ACETAMINOPHEN\HYDROCODONE BITARTRATE
     Indication: PAIN
     Dosage: 40MG/1300MG
     Route: 065
     Dates: start: 20150105

REACTIONS (4)
  - Dysgeusia [Unknown]
  - Nausea [Unknown]
  - Dry throat [Unknown]
  - Dysphonia [Unknown]

NARRATIVE: CASE EVENT DATE: 20150108
